FAERS Safety Report 6212816-X (Version None)
Quarter: 2009Q2

REPORT INFORMATION
  Report Type: 
  Country: None (occurrence: None)
  Receive Date: 20090601
  Receipt Date: 20090525
  Transmission Date: 20091009
  Serious: Yes (Disabling)
  Sender: FDA-Public Use
  Company Number: AE-2009-059

PATIENT
  Age: 38 Year
  Sex: Female
  Weight: 154 kg

DRUGS (3)
  1. METFORMIN HYDROCHLORIDE [Suspect]
     Indication: POLYCYSTIC OVARIES
     Dosage: 500MG, ORAL
     Route: 048
  2. DOXYCYCLINE [Concomitant]
  3. DERMOL [Concomitant]

REACTIONS (2)
  - CONDITION AGGRAVATED [None]
  - PSORIASIS [None]
